FAERS Safety Report 17894842 (Version 3)
Quarter: 2021Q2

REPORT INFORMATION
  Report Type: Spontaneous
  Country: US (occurrence: US)
  Receive Date: 20200615
  Receipt Date: 20210524
  Transmission Date: 20210717
  Serious: No
  Sender: FDA-Public Use
  Company Number: US-SA-2020SA148786

PATIENT
  Age: 67 Year
  Sex: Male

DRUGS (1)
  1. DUPIXENT [Suspect]
     Active Substance: DUPILUMAB
     Dosage: 300 MG
     Route: 058
     Dates: start: 202005, end: 202011

REACTIONS (4)
  - Intercepted product storage error [Unknown]
  - Product dose omission issue [Unknown]
  - Rebound effect [Unknown]
  - Therapy cessation [Unknown]

NARRATIVE: CASE EVENT DATE: 20200605
